FAERS Safety Report 9720691 (Version 1)
Quarter: 2013Q4

REPORT INFORMATION
  Report Type: Spontaneous
  Country: US (occurrence: US)
  Receive Date: 20131129
  Receipt Date: 20131129
  Transmission Date: 20140711
  Serious: Yes (Hospitalization)
  Sender: FDA-Public Use
  Company Number: US-ASTRAZENECA-2013SE86274

PATIENT
  Age: 13 Year
  Sex: Male

DRUGS (3)
  1. QUETIAPINE [Suspect]
     Indication: AFFECTIVE DISORDER
     Route: 048
  2. QUETIAPINE [Suspect]
     Indication: AFFECTIVE DISORDER
     Route: 048
  3. VALPROIC ACID [Concomitant]

REACTIONS (6)
  - Drug abuse [Unknown]
  - Myoclonus [Unknown]
  - Toxicity to various agents [Recovered/Resolved]
  - Dyskinesia [Unknown]
  - Akathisia [Unknown]
  - Restlessness [Unknown]
